FAERS Safety Report 12276085 (Version 1)
Quarter: 2016Q2

REPORT INFORMATION
  Report Type: Spontaneous
  Country: US (occurrence: US)
  Receive Date: 20160418
  Receipt Date: 20160418
  Transmission Date: 20160815
  Serious: No
  Sender: FDA-Public Use
  Company Number: US-BAYER-2016-072048

PATIENT
  Age: 90 Year
  Sex: Female
  Weight: 64.85 kg

DRUGS (1)
  1. CLARITIN [Suspect]
     Active Substance: LORATADINE
     Dosage: 1 DF, QD
     Route: 048
     Dates: start: 20160410, end: 20160411

REACTIONS (1)
  - Rhinorrhoea [None]

NARRATIVE: CASE EVENT DATE: 20160411
